FAERS Safety Report 7402055-9 (Version None)
Quarter: 2011Q2

REPORT INFORMATION
  Report Type: 
  Country: None (occurrence: None)
  Receive Date: 20110408
  Receipt Date: 20110329
  Transmission Date: 20111010
  Serious: Yes (Hospitalization, Other)
  Sender: FDA-Public Use
  Company Number: US-BAYER-2011-027560

PATIENT
  Sex: Female

DRUGS (1)
  1. MIRENA [Suspect]
     Dosage: UNK
     Dates: start: 20101101, end: 20110301

REACTIONS (3)
  - RUPTURED ECTOPIC PREGNANCY [None]
  - DEVICE DISLOCATION [None]
  - HAEMORRHAGIC DISORDER [None]
